FAERS Safety Report 13762366 (Version 1)
Quarter: 2017Q3

REPORT INFORMATION
  Report Type: Spontaneous
  Country: US (occurrence: US)
  Receive Date: 20170717
  Receipt Date: 20170717
  Transmission Date: 20171127
  Serious: Yes (Disabling)
  Sender: FDA-Public Use
  Company Number: None

PATIENT
  Age: 48 Year
  Sex: Female
  Weight: 87.3 kg

DRUGS (8)
  1. AMOX-CLAV [Concomitant]
     Active Substance: AMOXICILLIN\CLAVULANATE POTASSIUM
  2. MAXX LABS VITAMIN D3 PLUS [Concomitant]
  3. COLACE [Concomitant]
     Active Substance: DOCUSATE SODIUM
  4. CIPROFLOXACIN HCL [Suspect]
     Active Substance: CIPROFLOXACIN HYDROCHLORIDE
     Indication: URINARY TRACT INFECTION
     Dosage: ?          OTHER STRENGTH:MG;QUANTITY:1 TABLET(S);?
     Route: 048
     Dates: start: 20170711, end: 20170712
  5. OXYBUTYNIN [Concomitant]
     Active Substance: OXYBUTYNIN
  6. VITAMIN K2 [Suspect]
     Active Substance: MENAQUINONE 6
  7. COMPOUNDED BIO-IDENTICAL PROGESTERONE CREAM [Concomitant]
  8. NATURE-THROID [Concomitant]
     Active Substance: THYROID, PORCINE

REACTIONS (8)
  - Myalgia [None]
  - Suicidal ideation [None]
  - Anxiety [None]
  - Mobility decreased [None]
  - Pain in extremity [None]
  - Arthralgia [None]
  - Tendon pain [None]
  - Paraesthesia [None]

NARRATIVE: CASE EVENT DATE: 20170713
